FAERS Safety Report 24996668 (Version 3)
Quarter: 2025Q2

REPORT INFORMATION
  Report Type: Spontaneous
  Country: US (occurrence: US)
  Receive Date: 20250221
  Receipt Date: 20250520
  Transmission Date: 20250717
  Serious: No
  Sender: CALLIDITAS THERAPEUTICS AB
  Company Number: US-Calliditas-2025CAL00397

PATIENT
  Age: 28 Year
  Sex: Male

DRUGS (4)
  1. TARPEYO [Suspect]
     Active Substance: BUDESONIDE
     Indication: IgA nephropathy
     Route: 048
     Dates: start: 20241224
  2. ALLOPURINOL [Concomitant]
     Active Substance: ALLOPURINOL
  3. COLCHICINE [Concomitant]
     Active Substance: COLCHICINE
  4. PIMECROLIMUS [Concomitant]
     Active Substance: PIMECROLIMUS

REACTIONS (4)
  - Muscle spasms [Unknown]
  - Peripheral swelling [Unknown]
  - Swelling face [Unknown]
  - Weight increased [Unknown]

NARRATIVE: CASE EVENT DATE: 20241201
